FAERS Safety Report 6445781-0 (Version None)
Quarter: 2009Q4

REPORT INFORMATION
  Report Type: 
  Country: None (occurrence: None)
  Receive Date: 20091119
  Receipt Date: 20091110
  Transmission Date: 20100525
  Serious: Yes (Hospitalization)
  Sender: FDA-Public Use
  Company Number: US-BIOGENIDEC-2009BI023296

PATIENT
  Sex: Female

DRUGS (1)
  1. TYSABRI [Suspect]
     Indication: MULTIPLE SCLEROSIS
     Route: 042
     Dates: start: 20070613, end: 20090402

REACTIONS (8)
  - CYSTITIS [None]
  - DECUBITUS ULCER [None]
  - KIDNEY INFECTION [None]
  - NEPHROLITHIASIS [None]
  - OSTEOMYELITIS [None]
  - PAIN IN EXTREMITY [None]
  - RED MAN SYNDROME [None]
  - URINARY TRACT INFECTION [None]
